FAERS Safety Report 8346883-4 (Version None)
Quarter: 2012Q2

REPORT INFORMATION
  Report Type: 
  Country: None (occurrence: None)
  Receive Date: 20120509
  Receipt Date: 20120503
  Transmission Date: 20120825
  Serious: Yes (Other)
  Sender: FDA-Public Use
  Company Number: US-ABBOTT-11P-163-0854761-00

PATIENT
  Sex: Female

DRUGS (13)
  1. NEXIUM [Concomitant]
     Indication: DYSPEPSIA
  2. VITAMIN D [Concomitant]
     Indication: VITAMIN SUPPLEMENTATION
  3. ZOLPIDEM [Concomitant]
     Indication: INSOMNIA
  4. HUMIRA [Suspect]
     Indication: PSORIASIS
     Route: 058
     Dates: start: 20101101
  5. RAMIPRIL [Concomitant]
     Indication: HYPERTENSION
  6. RESTASIS [Concomitant]
     Indication: DRY EYE
  7. COQ10 [Concomitant]
     Indication: VITAMIN SUPPLEMENTATION
  8. SYMVISC INJECTION [Concomitant]
     Indication: OSTEOARTHRITIS
  9. HUMIRA [Suspect]
     Indication: RHEUMATOID ARTHRITIS
  10. MULTI-VITAMINS [Concomitant]
     Indication: VITAMIN SUPPLEMENTATION
  11. CALCIUM [Concomitant]
     Indication: MINERAL SUPPLEMENTATION
  12. HYDROCHLOROTHIAZIDE [Concomitant]
     Indication: HYPERTENSION
  13. SANCTURA [Concomitant]
     Indication: URINARY INCONTINENCE

REACTIONS (6)
  - BACK PAIN [None]
  - DRUG INEFFECTIVE [None]
  - LUMBAR SPINAL STENOSIS [None]
  - GAIT DISTURBANCE [None]
  - ARTHRALGIA [None]
  - MALAISE [None]
